FAERS Safety Report 5034966-6 (Version None)
Quarter: 2006Q2

REPORT INFORMATION
  Report Type: 
  Country: None (occurrence: None)
  Receive Date: 20060519
  Receipt Date: 20060331
  Transmission Date: 20061013
  Serious: No
  Sender: FDA-Public Use
  Company Number: TPA2006A00591

PATIENT
  Age: 75 Year
  Sex: Male
  Weight: 83.9154 kg

DRUGS (7)
  1. ROZEREM [Suspect]
     Indication: INSOMNIA
     Dosage: 8 MG, HS, PER ORAL
     Route: 048
     Dates: start: 20060301
  2. NORVASC (ALODIPINE BESILATE) (5 MILLIGRAMS) [Concomitant]
  3. LISINOPRIL (LISINOPRIL) (20 MILLIGRAM) [Concomitant]
  4. ZOCOR (SIMVASTATIN) (20 MILLIGRAM) [Concomitant]
  5. ALLOPURINOL (ALLOPURINOL) (300 MILLIGRAM) [Concomitant]
  6. LANOXIN (DIGOXIN) (0.125 MILLIGRAM) [Concomitant]
  7. WARFARIN SODIUM [Concomitant]

REACTIONS (4)
  - DRUG INEFFECTIVE [None]
  - INSOMNIA [None]
  - NAUSEA [None]
  - POLLAKIURIA [None]
